FAERS Safety Report 19196352 (Version 6)
Quarter: 2024Q1

REPORT INFORMATION
  Report Type: Report from Study
  Country: IN (occurrence: IN)
  Receive Date: 20210429
  Receipt Date: 20240312
  Transmission Date: 20240410
  Serious: Yes (Other)
  Sender: FDA-Public Use
  Company Number: IN-NOVARTISPH-PHHY2019IN074749

PATIENT
  Age: 56 Year
  Sex: Female

DRUGS (8)
  1. TASIGNA [Suspect]
     Active Substance: NILOTINIB
     Indication: Chronic myeloid leukaemia
     Dosage: 400 MG, BID
     Route: 048
     Dates: start: 20180929, end: 20181224
  2. TASIGNA [Suspect]
     Active Substance: NILOTINIB
     Dosage: 300 MG, QD
     Route: 048
     Dates: start: 20181227, end: 20190325
  3. TASIGNA [Suspect]
     Active Substance: NILOTINIB
     Dosage: 300 MG, BID
     Route: 048
     Dates: start: 20190326, end: 20210419
  4. TASIGNA [Suspect]
     Active Substance: NILOTINIB
     Dosage: 450 MG, QD
     Route: 065
     Dates: start: 20210420
  5. TASIGNA [Suspect]
     Active Substance: NILOTINIB
     Dosage: 450 MG, QD
     Route: 065
     Dates: start: 20220426
  6. TASIGNA [Suspect]
     Active Substance: NILOTINIB
     Dosage: 450 MG, QD
     Route: 065
     Dates: start: 20220927
  7. TASIGNA [Suspect]
     Active Substance: NILOTINIB
     Dosage: 450 MG, QD
     Route: 065
     Dates: start: 20230131
  8. TASIGNA [Suspect]
     Active Substance: NILOTINIB
     Dosage: 450 MG, (300 MG MORNING AND 150 MG EVENING)
     Route: 048
     Dates: start: 20230606

REACTIONS (3)
  - Electrocardiogram QT prolonged [Unknown]
  - Platelet count decreased [Unknown]
  - Off label use [Unknown]

NARRATIVE: CASE EVENT DATE: 20210420
